FAERS Safety Report 16043667 (Version 2)
Quarter: 2020Q1

REPORT INFORMATION
  Report Type: Spontaneous
  Country: US (occurrence: US)
  Receive Date: 20190306
  Receipt Date: 20200311
  Transmission Date: 20200409
  Serious: Yes (Death, Disabling, Other)
  Sender: FDA-Public Use
  Company Number: US-009507513-1903USA002498

PATIENT
  Sex: Male
  Weight: 114.74 kg

DRUGS (2)
  1. BYDUREON [Suspect]
     Active Substance: EXENATIDE
     Indication: TYPE 2 DIABETES MELLITUS
     Dosage: UNK
     Route: 048
     Dates: start: 20170228, end: 201705
  2. JANUVIA [Suspect]
     Active Substance: SITAGLIPTIN PHOSPHATE
     Indication: TYPE 2 DIABETES MELLITUS
     Dosage: 100 MG, ONCE DAILY
     Route: 048
     Dates: start: 20120127, end: 201612

REACTIONS (16)
  - Type 1 diabetes mellitus [Unknown]
  - Pancreatitis [Unknown]
  - Abdominal pain upper [Unknown]
  - Prostatomegaly [Unknown]
  - Pancreatic carcinoma metastatic [Fatal]
  - Gastrooesophageal reflux disease [Unknown]
  - Dyspepsia [Unknown]
  - Renal cyst [Unknown]
  - Diverticulum intestinal [Unknown]
  - Ulcer [Unknown]
  - Metastases to peritoneum [Unknown]
  - Bladder hypertrophy [Unknown]
  - Bile duct adenocarcinoma [Unknown]
  - Granuloma [Unknown]
  - Poisoning [Unknown]
  - Pneumobilia [Unknown]

NARRATIVE: CASE EVENT DATE: 20120412
